FAERS Safety Report 16290493 (Version 1)
Quarter: 2019Q2

REPORT INFORMATION
  Report Type: Spontaneous
  Country: US (occurrence: US)
  Receive Date: 20190509
  Receipt Date: 20190509
  Transmission Date: 20190711
  Serious: Yes (Other)
  Sender: FDA-Public Use
  Company Number: US-TEVA-2019-US-1045909

PATIENT
  Sex: Female

DRUGS (1)
  1. LOSARTAN POTASSIUM TABLETS [Suspect]
     Active Substance: LOSARTAN POTASSIUM
     Dates: start: 2014

REACTIONS (1)
  - Neoplasm malignant [Unknown]
